FAERS Safety Report 14163942 (Version 1)
Quarter: 2017Q4

REPORT INFORMATION
  Report Type: Spontaneous
  Country: US (occurrence: US)
  Receive Date: 20171106
  Receipt Date: 20171106
  Transmission Date: 20180321
  Serious: Yes (Other)
  Sender: FDA-Public Use
  Company Number: US-ALLERGAN-1762774US

PATIENT
  Sex: Female

DRUGS (1)
  1. RESTASIS [Suspect]
     Active Substance: CYCLOSPORINE
     Indication: DRY EYE
     Dosage: 2 GTT, BID
     Route: 047
     Dates: start: 2015

REACTIONS (3)
  - Cataract [Not Recovered/Not Resolved]
  - Transplant failure [Not Recovered/Not Resolved]
  - Multiple use of single-use product [Unknown]

NARRATIVE: CASE EVENT DATE: 2015
